FAERS Safety Report 7884506-9 (Version None)
Quarter: 2011Q4

REPORT INFORMATION
  Report Type: 
  Country: None (occurrence: None)
  Receive Date: 20111102
  Receipt Date: 20111026
  Transmission Date: 20120403
  Serious: Yes (Other)
  Sender: FDA-Public Use
  Company Number: GB-B.I. PHARMACEUTICALS,INC./RIDGEFIELD-2011-UK-01165UK

PATIENT
  Age: 69 Year
  Sex: Male

DRUGS (1)
  1. PRADAXA [Suspect]
     Indication: EMBOLISM VENOUS

REACTIONS (4)
  - BILIRUBIN URINE [None]
  - CHOLELITHIASIS [None]
  - CHROMATURIA [None]
  - LIVER FUNCTION TEST ABNORMAL [None]
